FAERS Safety Report 5145842-2 (Version None)
Quarter: 2006Q4

REPORT INFORMATION
  Report Type: 
  Country: None (occurrence: None)
  Receive Date: 20061108
  Receipt Date: 20061009
  Transmission Date: 20070319
  Serious: Yes (Hospitalization, Disabling)
  Sender: FDA-Public Use
  Company Number: PHEH2006US12662

PATIENT
  Age: 56 Year
  Sex: Male

DRUGS (7)
  1. NEXIUM [Concomitant]
     Dosage: 40 MG, QD
  2. LEXAPRO [Concomitant]
     Dosage: 10 MG, QD
  3. ZYRTEC [Concomitant]
     Dosage: 10 MG, QD
  4. XANAX [Concomitant]
     Dosage: 0.25MG, Q8H, PRN
  5. LUNESTA [Concomitant]
     Dosage: 2 MG, QHS
  6. DIOVAN [Suspect]
     Indication: ACCELERATED HYPERTENSION
     Dosage: 80MG, UNK
  7. DIOVAN [Suspect]
     Dosage: 40 MG, QHS
     Dates: start: 20060208

REACTIONS (15)
  - ANGIONEUROTIC OEDEMA [None]
  - BLOOD CREATININE INCREASED [None]
  - BLOOD PRESSURE INCREASED [None]
  - BLOOD UREA DECREASED [None]
  - BLOOD UREA INCREASED [None]
  - CHEST PAIN [None]
  - ENTERAL NUTRITION [None]
  - HYPERSENSITIVITY [None]
  - HYPOTENSION [None]
  - INFECTION [None]
  - INTUBATION [None]
  - PHARYNGEAL OEDEMA [None]
  - PNEUMONIA [None]
  - RENAL FAILURE [None]
  - STRIDOR [None]
